FAERS Safety Report 18810387 (Version 1)
Quarter: 2021Q1

REPORT INFORMATION
  Report Type: Spontaneous
  Country: NO (occurrence: NO)
  Receive Date: 20210129
  Receipt Date: 20210129
  Transmission Date: 20210419
  Serious: Yes (Disabling, Other)
  Sender: FDA-Public Use
  Company Number: NO-PFIZER INC-2021069158

PATIENT
  Age: 18 Year
  Sex: Female

DRUGS (1)
  1. DEPO?PROVERA [Suspect]
     Active Substance: MEDROXYPROGESTERONE ACETATE
     Dosage: UNK
     Route: 030
     Dates: start: 2004, end: 2004

REACTIONS (5)
  - Skin striae [Unknown]
  - Suicidal ideation [Unknown]
  - Weight increased [Not Recovered/Not Resolved]
  - Alopecia [Unknown]
  - Major depression [Unknown]

NARRATIVE: CASE EVENT DATE: 200405
